FAERS Safety Report 4503782-3 (Version None)
Quarter: 2004Q4

REPORT INFORMATION
  Report Type: 
  Country: None (occurrence: None)
  Receive Date: 20041117
  Receipt Date: 20030605
  Transmission Date: 20050328
  Serious: Yes (Disabling, Other)
  Sender: FDA-Public Use
  Company Number: US-MERCK-0306USA00868

PATIENT
  Age: 48 Year
  Sex: Female

DRUGS (20)
  1. VICODIN ES [Concomitant]
     Route: 065
  2. ARTHROTEC [Concomitant]
     Route: 065
  3. DITROPAN XL [Concomitant]
     Route: 065
  4. ADALAT [Concomitant]
     Route: 065
  5. QUININE [Concomitant]
     Route: 065
  6. CRIXIVAN [Concomitant]
     Route: 048
  7. CRIXIVAN [Concomitant]
     Route: 048
     Dates: start: 19990101
  8. COMBIVIR [Concomitant]
     Route: 065
     Dates: start: 19990101
  9. BACTRIM [Concomitant]
     Route: 065
  10. VIOXX [Suspect]
     Indication: MYALGIA
     Route: 048
     Dates: start: 19990816
  11. VIOXX [Suspect]
     Indication: PAIN
     Route: 048
     Dates: start: 19990816
  12. ZANTAC [Concomitant]
     Route: 065
  13. REGLAN [Concomitant]
     Route: 065
  14. DICYCLOMINE HYDROCHLORIDE [Concomitant]
     Route: 065
  15. PROCARDIA [Concomitant]
     Route: 065
  16. VICODIN ES [Concomitant]
     Route: 065
  17. ALLEGRA [Concomitant]
     Route: 065
  18. DIFLUCAN [Concomitant]
     Route: 065
  19. DESYREL [Concomitant]
     Route: 065
  20. SKELAXIN [Concomitant]
     Route: 048
     Dates: start: 19990816

REACTIONS (28)
  - ADVERSE EVENT [None]
  - AMNESIA [None]
  - ANAEMIA [None]
  - ARTHRALGIA [None]
  - ASTHENIA [None]
  - ATELECTASIS [None]
  - BACK PAIN [None]
  - BRONCHITIS [None]
  - CEREBROVASCULAR ACCIDENT [None]
  - CHEST PAIN [None]
  - DEPRESSION [None]
  - DIFFICULTY IN WALKING [None]
  - DISORIENTATION [None]
  - DYSARTHRIA [None]
  - DYSPNOEA [None]
  - DYSSTASIA [None]
  - FALL [None]
  - GASTROINTESTINAL HAEMORRHAGE [None]
  - HYPERSENSITIVITY [None]
  - INJURY [None]
  - NEUROPATHY [None]
  - PAIN IN EXTREMITY [None]
  - POLYNEUROPATHY [None]
  - POLYURIA [None]
  - PULMONARY FIBROSIS [None]
  - SYNCOPE [None]
  - TONGUE DISORDER [None]
  - URINARY INCONTINENCE [None]
